FAERS Safety Report 25122998 (Version 2)
Quarter: 2025Q2

REPORT INFORMATION
  Report Type: Spontaneous
  Country: US (occurrence: US)
  Receive Date: 20250326
  Receipt Date: 20250402
  Transmission Date: 20250716
  Serious: Yes (Life-Threatening, Hospitalization)
  Sender: MYLAN
  Company Number: US-MYLANLABS-2025M1025062

PATIENT
  Age: 76 Year
  Sex: Male

DRUGS (1)
  1. DAPSONE [Suspect]
     Active Substance: DAPSONE
     Indication: Antifungal prophylaxis

REACTIONS (5)
  - Cardiogenic shock [Recovering/Resolving]
  - Methaemoglobinaemia [Recovering/Resolving]
  - Pulmonary congestion [Recovering/Resolving]
  - Lactic acidosis [Recovered/Resolved]
  - Off label use [Unknown]
